FAERS Safety Report 25654077 (Version 1)
Quarter: 2025Q3

REPORT INFORMATION
  Report Type: Spontaneous
  Country: EU (occurrence: EU)
  Receive Date: 20250807
  Receipt Date: 20250807
  Transmission Date: 20251021
  Serious: Yes (Hospitalization)
  Sender: MYLAN
  Company Number: EU-MYLANLABS-2025M1065781

PATIENT
  Age: 49 Year
  Sex: Male

DRUGS (28)
  1. SPIRONOLACTONE [Suspect]
     Active Substance: SPIRONOLACTONE
     Indication: Heart failure with reduced ejection fraction
     Dosage: 50 MILLIGRAM, QD
  2. SPIRONOLACTONE [Suspect]
     Active Substance: SPIRONOLACTONE
     Dosage: 50 MILLIGRAM, QD
     Route: 065
  3. SPIRONOLACTONE [Suspect]
     Active Substance: SPIRONOLACTONE
     Dosage: 50 MILLIGRAM, QD
     Route: 065
  4. SPIRONOLACTONE [Suspect]
     Active Substance: SPIRONOLACTONE
     Dosage: 50 MILLIGRAM, QD
  5. IVABRADINE [Suspect]
     Active Substance: IVABRADINE
     Indication: Heart failure with reduced ejection fraction
  6. IVABRADINE [Suspect]
     Active Substance: IVABRADINE
     Route: 065
  7. IVABRADINE [Suspect]
     Active Substance: IVABRADINE
     Route: 065
  8. IVABRADINE [Suspect]
     Active Substance: IVABRADINE
  9. BISOPROLOL [Suspect]
     Active Substance: BISOPROLOL
     Indication: Heart failure with reduced ejection fraction
     Dosage: 10 MILLIGRAM, QD
  10. BISOPROLOL [Suspect]
     Active Substance: BISOPROLOL
     Dosage: 10 MILLIGRAM, QD
     Route: 065
  11. BISOPROLOL [Suspect]
     Active Substance: BISOPROLOL
     Dosage: 10 MILLIGRAM, QD
     Route: 065
  12. BISOPROLOL [Suspect]
     Active Substance: BISOPROLOL
     Dosage: 10 MILLIGRAM, QD
  13. DAPAGLIFLOZIN [Suspect]
     Active Substance: DAPAGLIFLOZIN
     Indication: Heart failure with reduced ejection fraction
     Dosage: 10 MILLIGRAM, QD
  14. DAPAGLIFLOZIN [Suspect]
     Active Substance: DAPAGLIFLOZIN
     Dosage: 10 MILLIGRAM, QD
     Route: 065
  15. DAPAGLIFLOZIN [Suspect]
     Active Substance: DAPAGLIFLOZIN
     Dosage: 10 MILLIGRAM, QD
     Route: 065
  16. DAPAGLIFLOZIN [Suspect]
     Active Substance: DAPAGLIFLOZIN
     Dosage: 10 MILLIGRAM, QD
  17. SACUBITRIL\VALSARTAN [Suspect]
     Active Substance: SACUBITRIL\VALSARTAN
     Indication: Heart failure with reduced ejection fraction
     Dosage: UNK, BID, 97MG OF SACUBITRIL AND 103MG OF VALSARTAN
  18. SACUBITRIL\VALSARTAN [Suspect]
     Active Substance: SACUBITRIL\VALSARTAN
     Dosage: UNK, BID, 97MG OF SACUBITRIL AND 103MG OF VALSARTAN
     Route: 065
  19. SACUBITRIL\VALSARTAN [Suspect]
     Active Substance: SACUBITRIL\VALSARTAN
     Dosage: UNK, BID, 97MG OF SACUBITRIL AND 103MG OF VALSARTAN
     Route: 065
  20. SACUBITRIL\VALSARTAN [Suspect]
     Active Substance: SACUBITRIL\VALSARTAN
     Dosage: UNK, BID, 97MG OF SACUBITRIL AND 103MG OF VALSARTAN
  21. FUROSEMIDE [Suspect]
     Active Substance: FUROSEMIDE
     Indication: Heart failure with reduced ejection fraction
     Dosage: 40 MILLIGRAM, TID
  22. FUROSEMIDE [Suspect]
     Active Substance: FUROSEMIDE
     Dosage: 40 MILLIGRAM, TID
     Route: 065
  23. FUROSEMIDE [Suspect]
     Active Substance: FUROSEMIDE
     Dosage: 40 MILLIGRAM, TID
     Route: 065
  24. FUROSEMIDE [Suspect]
     Active Substance: FUROSEMIDE
     Dosage: 40 MILLIGRAM, TID
  25. METOLAZONE [Suspect]
     Active Substance: METOLAZONE
     Indication: Heart failure with reduced ejection fraction
  26. METOLAZONE [Suspect]
     Active Substance: METOLAZONE
     Route: 065
  27. METOLAZONE [Suspect]
     Active Substance: METOLAZONE
     Route: 065
  28. METOLAZONE [Suspect]
     Active Substance: METOLAZONE

REACTIONS (3)
  - Drug ineffective [Unknown]
  - Discomfort [Recovered/Resolved]
  - Dizziness [Recovered/Resolved]
